FAERS Safety Report 22121100 (Version 8)
Quarter: 2024Q3

REPORT INFORMATION
  Report Type: Spontaneous
  Country: US (occurrence: US)
  Receive Date: 20230321
  Receipt Date: 20240911
  Transmission Date: 20241017
  Serious: Yes (Life-Threatening, Other)
  Sender: PFIZER
  Company Number: US-PFIZER INC-202300119011

PATIENT
  Age: 70 Year
  Sex: Female
  Weight: 68.027 kg

DRUGS (8)
  1. NURTEC ODT [Suspect]
     Active Substance: RIMEGEPANT SULFATE
     Indication: Migraine
     Dosage: 75 MG, ALTERNATE DAY (IN AM)
     Route: 048
     Dates: start: 20230308, end: 20230315
  2. LEVOTHYROXINE [Concomitant]
     Active Substance: LEVOTHYROXINE\LEVOTHYROXINE SODIUM
     Dosage: 100 UG, DAILY
  3. LIOTHYRONINE [Concomitant]
     Active Substance: LIOTHYRONINE
     Dosage: 5 UG, DAILY
  4. DILACOR XR [Concomitant]
     Active Substance: DILTIAZEM HYDROCHLORIDE
     Dosage: 120 MG, DAILY
  5. ALLERCLEAR D [Concomitant]
     Dosage: UNK
  6. VITAMIN B2 [Concomitant]
     Active Substance: RIBOFLAVIN
     Dosage: 400 MG, DAILY
  7. MAGNESIUM [Concomitant]
     Active Substance: MAGNESIUM
     Dosage: 800 MG, DAILY
  8. THERATEARS [Concomitant]
     Active Substance: CARBOXYMETHYLCELLULOSE SODIUM
     Indication: Dry eye
     Dosage: UNK

REACTIONS (7)
  - Suicidal ideation [Recovered/Resolved]
  - Disease recurrence [Recovered/Resolved]
  - Depression [Unknown]
  - Abnormal behaviour [Unknown]
  - Insomnia [Unknown]
  - Hypoacusis [Unknown]
  - Drug ineffective [Unknown]

NARRATIVE: CASE EVENT DATE: 20230301
